FAERS Safety Report 9267318 (Version 1)
Quarter: 2013Q2

REPORT INFORMATION
  Report Type: Report from Study
  Country: CA (occurrence: CA)
  Receive Date: 20130502
  Receipt Date: 20130502
  Transmission Date: 20140414
  Serious: Yes (Hospitalization, Other)
  Sender: FDA-Public Use
  Company Number: CA-JNJFOC-20130415211

PATIENT
  Age: 49 Year
  Sex: Male
  Weight: 77.11 kg

DRUGS (1)
  1. STELARA [Suspect]
     Indication: PSORIASIS
     Dosage: INITIATED ON OR BEFORE THE YEAR 2011

REACTIONS (3)
  - Neoplasm malignant [Unknown]
  - Pancreaticoduodenectomy [Unknown]
  - Diabetes mellitus [Unknown]
